FAERS Safety Report 5096246-2 (Version None)
Quarter: 2006Q3

REPORT INFORMATION
  Report Type: 
  Country: None (occurrence: None)
  Receive Date: 20060905
  Receipt Date: 20060721
  Transmission Date: 20061208
  Serious: Yes (Death, Hospitalization)
  Sender: FDA-Public Use
  Company Number: FR-BAYER-200610712BFR

PATIENT
  Age: 86 Year
  Sex: Female
  Weight: 46 kg

DRUGS (4)
  1. NEXAVAR [Suspect]
     Indication: METASTATIC RENAL CELL CARCINOMA
     Dosage: TOTAL DAILY DOSE: 800 MG  UNIT DOSE: 400 MG
     Route: 048
     Dates: start: 20060707, end: 20060718
  2. NOVOMIX [Concomitant]
     Indication: DIABETES MELLITUS
     Dosage: UNIT DOSE: 10 IU
     Route: 058
     Dates: start: 20060101
  3. COZAAR [Concomitant]
     Indication: HYPERTENSION
     Dosage: UNIT DOSE: 50 MG
     Route: 048
     Dates: start: 20060201
  4. MOPRAL [Concomitant]
     Indication: ABDOMINAL PAIN UPPER
     Dosage: UNIT DOSE: 20 MG
     Route: 048
     Dates: start: 20060623

REACTIONS (2)
  - DEHYDRATION [None]
  - DEPRESSED LEVEL OF CONSCIOUSNESS [None]
